FAERS Safety Report 23292581 (Version 1)
Quarter: 2023Q4

REPORT INFORMATION
  Report Type: Spontaneous
  Country: US (occurrence: None)
  Receive Date: 20231212
  Receipt Date: 20231212
  Transmission Date: 20240110
  Serious: No
  Sender: FDA-Public Use
  Company Number: None

PATIENT
  Sex: Female

DRUGS (3)
  1. RASUVO [Suspect]
     Active Substance: METHOTREXATE SODIUM
     Indication: Juvenile idiopathic arthritis
     Dosage: 25MG ONCE WEEKLY SUBCUTANEOUS
     Route: 058
     Dates: start: 201902
  2. RASUVO [Suspect]
     Active Substance: METHOTREXATE SODIUM
     Indication: Juvenile idiopathic arthritis
  3. SIMPONI [Concomitant]
     Active Substance: GOLIMUMAB

REACTIONS (1)
  - Drug ineffective [None]
